FAERS Safety Report 4551327-4 (Version None)
Quarter: 2005Q1

REPORT INFORMATION
  Report Type: 
  Country: None (occurrence: None)
  Receive Date: 20050107
  Receipt Date: 20041222
  Transmission Date: 20050727
  Serious: Yes (Hospitalization)
  Sender: FDA-Public Use
  Company Number: DSA_25549_2004

PATIENT
  Age: 49 Year
  Sex: Male

DRUGS (1)
  1. DILTIAZEM HYDROCHLORIDE [Suspect]
     Indication: HYPERTENSION
     Dosage: 90 MG BID PO
     Route: 048
     Dates: start: 20040916, end: 20040919

REACTIONS (3)
  - DRUG ERUPTION [None]
  - FLUSHING [None]
  - HEPATIC FUNCTION ABNORMAL [None]
